FAERS Safety Report 15157183 (Version 1)
Quarter: 2018Q3

REPORT INFORMATION
  Report Type: Report from Study
  Country: US (occurrence: US)
  Receive Date: 20180718
  Receipt Date: 20180718
  Transmission Date: 20181010
  Serious: Yes (Other)
  Sender: FDA-Public Use
  Company Number: US-AMGEN-USASL2018095258

PATIENT
  Sex: Female

DRUGS (2)
  1. ENBREL [Suspect]
     Active Substance: ETANERCEPT
     Indication: RHEUMATOID ARTHRITIS
     Dosage: UNK
     Route: 065
     Dates: end: 201804
  2. ENBREL [Suspect]
     Active Substance: ETANERCEPT
     Dosage: UNK
     Route: 065
     Dates: start: 2018

REACTIONS (7)
  - Skin neoplasm excision [Unknown]
  - Rheumatoid arthritis [Unknown]
  - Knee arthroplasty [Unknown]
  - Narcolepsy [Unknown]
  - Neoplasm malignant [Unknown]
  - Glaucoma [Unknown]
  - Depression [Unknown]

NARRATIVE: CASE EVENT DATE: 2018
